FAERS Safety Report 5886891-6 (Version None)
Quarter: 2008Q3

REPORT INFORMATION
  Report Type: 
  Country: None (occurrence: None)
  Receive Date: 20080917
  Receipt Date: 20080909
  Transmission Date: 20090109
  Serious: Yes (Other)
  Sender: FDA-Public Use
  Company Number: JP-AMGEN-US296195

PATIENT
  Age: 57 Year
  Sex: Male

DRUGS (9)
  1. ENBREL [Suspect]
     Indication: RHEUMATOID ARTHRITIS
     Dosage: UNKNOWN DOSE; LYOPHILIZED
     Route: 058
     Dates: start: 20080614, end: 20080710
  2. ADALAT [Concomitant]
     Route: 065
  3. DIOVAN [Concomitant]
     Route: 065
  4. ZYLORIC [Concomitant]
     Route: 065
  5. CARDENALIN [Concomitant]
     Route: 065
  6. BISOPROLOL FUMARATE [Concomitant]
     Route: 065
  7. ISCOTIN [Concomitant]
     Route: 065
  8. FAMOTIDINE [Concomitant]
     Route: 065
  9. CHARCOAL, ACTIVATED [Concomitant]
     Route: 065

REACTIONS (1)
  - BULBAR PALSY [None]
